FAERS Safety Report 14112705 (Version 1)
Quarter: 2017Q4

REPORT INFORMATION
  Report Type: Spontaneous
  Country: US (occurrence: US)
  Receive Date: 20171021
  Receipt Date: 20171021
  Transmission Date: 20180321
  Serious: Yes (Life-Threatening, Hospitalization, Other)
  Sender: FDA-Public Use
  Company Number: US-AUROBINDO-AUR-APL-2017-41947

PATIENT
  Age: 60 Year
  Sex: Male

DRUGS (2)
  1. DEXAMETHASONE. [Suspect]
     Active Substance: DEXAMETHASONE
     Indication: PULMONARY EMBOLISM
     Dosage: 4 MG, TWO TIMES A DAY
  2. XARELTO [Concomitant]
     Active Substance: RIVAROXABAN
     Indication: PULMONARY EMBOLISM

REACTIONS (4)
  - Septic shock [Unknown]
  - Multiple organ dysfunction syndrome [Unknown]
  - Necrotising fasciitis [Unknown]
  - Aeromonas infection [Unknown]
